FAERS Safety Report 6119870-4 (Version None)
Quarter: 2009Q1

REPORT INFORMATION
  Report Type: 
  Country: None (occurrence: None)
  Receive Date: 20090316
  Receipt Date: 20090304
  Transmission Date: 20090719
  Serious: Yes (Death)
  Sender: FDA-Public Use
  Company Number: GB-ROCHE-618937

PATIENT
  Age: 40 Year
  Sex: Male

DRUGS (3)
  1. PEGASYS [Suspect]
     Indication: HEPATITIS C
     Dosage: DOSE REPORTED AS 180
     Route: 065
     Dates: start: 20080901, end: 20090201
  2. COPEGUS [Suspect]
     Indication: HEPATITIS C
     Dosage: DOSE REPORTED AS 800
     Route: 065
  3. ANTIDEPRESSANTS [Concomitant]

REACTIONS (1)
  - DEATH [None]
